FAERS Safety Report 20358998 (Version 1)
Quarter: 2022Q1

REPORT INFORMATION
  Report Type: Spontaneous
  Country: US (occurrence: US)
  Receive Date: 20220120
  Receipt Date: 20220120
  Transmission Date: 20220423
  Serious: No
  Sender: FDA-Public Use
  Company Number: US-drreddys-SPO/USA/22/0145894

PATIENT
  Age: 25 Year
  Sex: Female

DRUGS (1)
  1. ZENATANE [Suspect]
     Active Substance: ISOTRETINOIN
     Indication: Product used for unknown indication
     Dosage: RMA ISSUE DATE: 31 AUGUST 2021,06:38:52 PM, 06:49:17 PM, 30 SEPTEMBER 2021 05:04:26 PM, 09 NOVEMBER

REACTIONS (1)
  - Adverse drug reaction [Unknown]
